FAERS Safety Report 4798282-X (Version None)
Quarter: 2005Q4

REPORT INFORMATION
  Report Type: 
  Country: None (occurrence: None)
  Receive Date: 20051006
  Receipt Date: 20051006
  Transmission Date: 20060501
  Serious: Yes (Hospitalization)
  Sender: FDA-Public Use
  Company Number: None

PATIENT
  Age: 79 Year
  Sex: Female
  Weight: 98 kg

DRUGS (5)
  1. COLCHICINE [Suspect]
     Indication: GOUT
     Dosage: 0.6 MG PO QD
     Route: 048
  2. HYDROCHLOROTHIAZIDE [Concomitant]
  3. APAP TAB [Concomitant]
  4. LANSOPRAZOLE [Concomitant]
  5. INSULIN [Concomitant]

REACTIONS (6)
  - ABASIA [None]
  - BLOOD CREATININE INCREASED [None]
  - DRUG DOSE OMISSION [None]
  - PAIN [None]
  - SWELLING [None]
  - TREATMENT NONCOMPLIANCE [None]
